FAERS Safety Report 12763339 (Version 1)
Quarter: 2016Q3

REPORT INFORMATION
  Report Type: Spontaneous
  Country: US (occurrence: US)
  Receive Date: 20160919
  Receipt Date: 20160919
  Transmission Date: 20161109
  Serious: Yes (Disabling)
  Sender: FDA-Public Use
  Company Number: None

PATIENT
  Age: 76 Year
  Sex: Female
  Weight: 45.81 kg

DRUGS (3)
  1. LIPITOR [Concomitant]
     Active Substance: ATORVASTATIN CALCIUM
  2. ACTONEL [Suspect]
     Active Substance: RISEDRONATE SODIUM
     Indication: OSTEOPOROSIS
     Dosage: 35MG 1 TAB 1 A WEEK MORNING BY MOUTH BEFORE EATING
     Route: 048
     Dates: start: 20121211, end: 20160817
  3. RISEDRONATE [Suspect]
     Active Substance: RISEDRONATE SODIUM

REACTIONS (5)
  - Dysphonia [None]
  - Throat irritation [None]
  - Oropharyngeal pain [None]
  - Dysgeusia [None]
  - Inflammation [None]

NARRATIVE: CASE EVENT DATE: 20140504
